FAERS Safety Report 8606216-2 (Version None)
Quarter: 2012Q3

REPORT INFORMATION
  Report Type: 
  Country: None (occurrence: None)
  Receive Date: 20120820
  Receipt Date: 20120809
  Transmission Date: 20120928
  Serious: Yes (Hospitalization, Other)
  Sender: FDA-Public Use
  Company Number: US-ASTRAZENECA-2012SE41879

PATIENT
  Age: 48 Year
  Sex: Male
  Weight: 70.3 kg

DRUGS (26)
  1. SEROQUEL XR [Suspect]
     Indication: MAJOR DEPRESSION
     Route: 048
  2. VENTOLIN [Concomitant]
  3. ZYRTEC [Concomitant]
  4. PRAMOSONE [Concomitant]
  5. CELEXA [Concomitant]
  6. DONNATAL [Concomitant]
  7. OMEPRAZOLE [Concomitant]
     Route: 048
  8. VALIUM [Concomitant]
  9. ZANTAC [Concomitant]
  10. AZALASTINE [Concomitant]
  11. VALIUM [Concomitant]
  12. TYLENOL [Concomitant]
  13. BENADRYL [Concomitant]
  14. NACO3 [Concomitant]
  15. ALBUTEROL [Concomitant]
     Dosage: 0.83 %
  16. SUMATRIPTAN [Concomitant]
  17. SEROQUEL XR [Suspect]
     Route: 048
     Dates: start: 20080101
  18. SIMVASTATIN [Concomitant]
  19. IMMUNOTHERAPY TREATMENT [Concomitant]
  20. DOXEPIN [Suspect]
     Route: 065
  21. VERAMYST [Concomitant]
  22. DULERA [Concomitant]
  23. ZOFRAN [Concomitant]
  24. CARAFATE [Concomitant]
  25. GAVISCON [Concomitant]
  26. MELATONIN [Concomitant]

REACTIONS (13)
  - MUSCULOSKELETAL DISCOMFORT [None]
  - DEPRESSION [None]
  - INJURY [None]
  - CONVERSION DISORDER [None]
  - METABOLIC DISORDER [None]
  - THERAPEUTIC RESPONSE UNEXPECTED [None]
  - COGNITIVE DISORDER [None]
  - PAIN [None]
  - HEAD INJURY [None]
  - SOMNOLENCE [None]
  - DRUG DOSE OMISSION [None]
  - MEMORY IMPAIRMENT [None]
  - STRESS [None]
